FAERS Safety Report 21094959 (Version 1)
Quarter: 2022Q3

REPORT INFORMATION
  Report Type: Spontaneous
  Country: US (occurrence: None)
  Receive Date: 20220715
  Receipt Date: 20220715
  Transmission Date: 20221026
  Serious: Yes (Other)
  Sender: FDA-Public Use
  Company Number: None

PATIENT
  Age: 29 Year
  Sex: Female
  Weight: 130.5 kg

DRUGS (9)
  1. MAGNESIUM CITRATE [Suspect]
     Active Substance: MAGNESIUM CITRATE
     Indication: Bowel preparation
     Dosage: OTHER QUANTITY : 10 OUNCE(S);?OTHER FREQUENCY : ENTIRE BOTTLE 1 HO;?
     Route: 048
     Dates: start: 20220607, end: 20220608
  2. OMEPRAZOLE [Concomitant]
     Active Substance: OMEPRAZOLE
  3. LORYNA [Concomitant]
     Active Substance: DROSPIRENONE\ETHINYL ESTRADIOL
  4. ALBUTEROL [Concomitant]
     Active Substance: ALBUTEROL
  5. ZYRTEC [Concomitant]
     Active Substance: CETIRIZINE HYDROCHLORIDE
  6. NASACORT [Concomitant]
     Active Substance: TRIAMCINOLONE ACETONIDE
  7. GAS-X [Concomitant]
     Active Substance: DIMETHICONE
  8. DIETARY SUPPLEMENT [Concomitant]
     Active Substance: DIETARY SUPPLEMENT
  9. PHILLIPS COLON HEALTH [Concomitant]

REACTIONS (5)
  - Malaise [None]
  - Vomiting [None]
  - Diarrhoea [None]
  - Nausea [None]
  - Gastrointestinal disorder [None]

NARRATIVE: CASE EVENT DATE: 20220613
